FAERS Safety Report 13463076 (Version 1)
Quarter: 2017Q2

REPORT INFORMATION
  Report Type: Spontaneous
  Country: US (occurrence: US)
  Receive Date: 20170420
  Receipt Date: 20170420
  Transmission Date: 20170830
  Serious: No
  Sender: FDA-Public Use
  Company Number: US-B.I. PHARMACEUTICALS,INC./RIDGEFIELD-2017-BI-022198

PATIENT
  Age: 55 Year
  Sex: Female

DRUGS (22)
  1. TRAJENTA [Suspect]
     Active Substance: LINAGLIPTIN
     Indication: DIABETES MELLITUS
     Dosage: 1 TABLET 1 TIME DAILY;  FORM STRENGTH: 5 MG; FORMULATION: TABLET? ADMINISTRATION CORRECT? YES ?ACTIO
     Route: 048
     Dates: start: 201502, end: 201701
  2. OMEGA 3 [Concomitant]
     Active Substance: OMEGA-3 FATTY ACIDS
     Indication: PRODUCT USED FOR UNKNOWN INDICATION
     Dosage: 1 TABLET 1 TIME DAILY;  FORMULATION: TABLET;
     Route: 048
  3. TRAJENTA [Suspect]
     Active Substance: LINAGLIPTIN
     Dosage: 1 TABLET BID;  FORM STRENGTH: 5 MG; FORMULATION: TABLET? ADMINISTRATION CORRECT? NO ?ACTION(S) TAKEN
     Route: 048
     Dates: start: 201701, end: 20170417
  4. FUROSEMIDE. [Concomitant]
     Active Substance: FUROSEMIDE
     Indication: PERIPHERAL SWELLING
  5. FLUOXETINE [Concomitant]
     Active Substance: FLUOXETINE HYDROCHLORIDE
     Indication: ANXIETY
     Dosage: 1 CAPSULE 1 TIME DAILY;  FORM STRENGTH: 40 MG; FORMULATION: CAPSULE
     Route: 048
  6. FUROSEMIDE. [Concomitant]
     Active Substance: FUROSEMIDE
     Indication: PERIPHERAL SWELLING
  7. OMEPRAZOLE. [Concomitant]
     Active Substance: OMEPRAZOLE
     Indication: GASTROOESOPHAGEAL REFLUX DISEASE
     Dosage: 1 TABLET 1 TIME DAILY;  FORM STRENGTH: 20 MG; FORMULATION: TABLET
     Route: 048
  8. LISINOPRIL / HYDROCHLOROTHIAZIDE [Concomitant]
     Indication: HYPERTENSION
     Dosage: 2 TABLETS 1 TIME DAILY,  FORM STRENGTH AND UNIT DOSE: 20 MG / 12.5 MG; DAILY DOSE: 40MG/25MG; FORMUL
     Route: 048
  9. VITAMIN D3 [Concomitant]
     Active Substance: CHOLECALCIFEROL
     Indication: PRODUCT USED FOR UNKNOWN INDICATION
     Dosage: 1 TABLET BID;  FORM STRENGTH: 5000 IU; FORMULATION: TABLET
     Route: 048
  10. GLIPIZIDE. [Concomitant]
     Active Substance: GLIPIZIDE
     Indication: DIABETES MELLITUS
     Dosage: 2 TABLETS BID;  FORM STRENGTH: 10 MG; FORMULATION: TABLET
     Route: 048
     Dates: start: 201701
  11. FUROSEMIDE. [Concomitant]
     Active Substance: FUROSEMIDE
     Indication: PERIPHERAL SWELLING
     Dosage: 1 TABLET 1 TIME DAILY;  FORM STRENGTH: 20 MG; FORMULATION: TABLET
     Route: 048
     Dates: start: 201702
  12. ASPIRIN. [Concomitant]
     Active Substance: ASPIRIN
     Indication: PRODUCT USED FOR UNKNOWN INDICATION
     Dosage: 1 TABLET 1 TIME DAILY;  FORM STRENGTH: 81 MG; FORMULATION: TABLET
     Route: 048
  13. COENZYME Q10 [Concomitant]
     Active Substance: UBIDECARENONE
     Indication: PRODUCT USED FOR UNKNOWN INDICATION
     Dosage: 1 CAPSULE 1 TIME DAILY;  FORM STRENGTH: 100 MG; FORMULATION: CAPSULE
     Route: 048
  14. METFORMIN [Concomitant]
     Active Substance: METFORMIN HYDROCHLORIDE
     Indication: DIABETES MELLITUS
     Dosage: 1 TABLET BID;  FORM STRENGTH: 1000 MG; FORMULATION: TABLET
     Route: 048
     Dates: start: 2011
  15. SINGULAIR [Concomitant]
     Active Substance: MONTELUKAST SODIUM
     Indication: HYPERSENSITIVITY
     Dosage: 1 TABLET 1 TIME DAILY;  FORMULATION: TABLET;
     Route: 048
  16. FENOFIBRATE. [Concomitant]
     Active Substance: FENOFIBRATE
     Indication: BLOOD CHOLESTEROL INCREASED
     Dosage: 1 TABLET 1 TIME DAILY;  FORM STRENGTH: 160 MG; FORMULATION: TABLET
     Route: 048
  17. TRAJENTA [Suspect]
     Active Substance: LINAGLIPTIN
     Dosage: 1 TABLET 1 TIME DAILY;  FORM STRENGTH: 5 MG; FORMULATION: TABLET? ADMINISTRATION CORRECT? YES ?ACTIO
     Route: 048
     Dates: start: 20170418
  18. FARXIGA [Concomitant]
     Active Substance: DAPAGLIFLOZIN PROPANEDIOL
     Indication: DIABETES MELLITUS
     Dosage: 1 TABLET 1 TIME DAILY;  FORM STRENGTH: 10 MG; FORMULATION: TABLET
     Route: 048
     Dates: start: 2014, end: 201701
  19. FUROSEMIDE. [Concomitant]
     Active Substance: FUROSEMIDE
     Indication: PERIPHERAL SWELLING
  20. LORATADINE. [Concomitant]
     Active Substance: LORATADINE
     Indication: HYPERSENSITIVITY
     Dosage: 1 TABLET 1 TIME DAILY;  FORM STRENGTH: 10 MG; FORMULATION: TABLET
     Route: 048
  21. ALLOPURINOL. [Concomitant]
     Active Substance: ALLOPURINOL
     Indication: GOUT
     Dosage: 1 TABLET 1 TIME DAILY;  FORM STRENGTH: 300 MG; FORMULATION: TABLET
     Route: 048
  22. VITAMIN B12 [Concomitant]
     Active Substance: CYANOCOBALAMIN
     Indication: PRODUCT USED FOR UNKNOWN INDICATION
     Dosage: 1 TABLET 1 TIME DAILY;  FORM STRENGTH: 1000 MG; FORMULATION: TABLET
     Route: 048

REACTIONS (2)
  - Drug prescribing error [Recovered/Resolved]
  - Drug ineffective [Not Recovered/Not Resolved]

NARRATIVE: CASE EVENT DATE: 201502
